FAERS Safety Report 11863907 (Version 1)
Quarter: 2015Q4

REPORT INFORMATION
  Report Type: Spontaneous
  Country: US (occurrence: US)
  Receive Date: 20151223
  Receipt Date: 20151223
  Transmission Date: 20160305
  Serious: Yes (Other)
  Sender: FDA-Public Use
  Company Number: US-BAUSCH-BL-2015-030345

PATIENT
  Age: 47 Year
  Sex: Female
  Weight: 59.02 kg

DRUGS (1)
  1. ADDYI [Suspect]
     Active Substance: FLIBANSERIN
     Indication: LIBIDO DECREASED
     Route: 048
     Dates: start: 20151212, end: 20151214

REACTIONS (7)
  - Asthenia [Recovered/Resolved]
  - Somnolence [Recovered/Resolved]
  - Loss of consciousness [Recovered/Resolved]
  - Fall [None]
  - Drug ineffective [None]
  - Burning sensation [Recovered/Resolved]
  - Muscular weakness [None]

NARRATIVE: CASE EVENT DATE: 20151212
